FAERS Safety Report 4879243-9 (Version None)
Quarter: 2005Q4

REPORT INFORMATION
  Report Type: 
  Country: None (occurrence: None)
  Receive Date: 20051205
  Receipt Date: 20050207
  Transmission Date: 20060501
  Serious: Yes (Hospitalization)
  Sender: FDA-Public Use
  Company Number: 2005-124959-NL

PATIENT
  Age: 26 Year
  Sex: Female

DRUGS (3)
  1. NUVARING [Suspect]
     Indication: CONTRACEPTION
     Dates: start: 20040818
  2. LEXAPRO [Concomitant]
  3. NORTRIPTYLINE HCL [Concomitant]

REACTIONS (1)
  - PULMONARY EMBOLISM [None]
